FAERS Safety Report 4555741-2 (Version None)
Quarter: 2005Q1

REPORT INFORMATION
  Report Type: 
  Country: None (occurrence: None)
  Receive Date: 20050112
  Receipt Date: 20040129
  Transmission Date: 20050727
  Serious: Yes (Other)
  Sender: FDA-Public Use
  Company Number: 200325639BWH

PATIENT
  Age: 54 Year
  Sex: Female
  Weight: 58.514 kg

DRUGS (13)
  1. CIPRO [Suspect]
     Indication: URINARY TRACT INFECTION
     Dosage: SEE IMAGE
     Dates: start: 20030917, end: 20030918
  2. CIPRO [Suspect]
     Indication: URINARY TRACT INFECTION
     Dosage: SEE IMAGE
     Dates: start: 20030918, end: 20030922
  3. CIPRO [Suspect]
     Indication: URINARY TRACT INFECTION
     Dosage: SEE IMAGE
     Dates: start: 20030922, end: 20030927
  4. MIRALAX [Concomitant]
  5. LAMICTAL [Concomitant]
  6. OS-CAL D [Concomitant]
  7. SENOKOT [Concomitant]
  8. ZYRTEC [Concomitant]
  9. PREVACID [Concomitant]
  10. DEPAKENE [Concomitant]
  11. LACTULOSE [Concomitant]
  12. MIACALCIN [Concomitant]
  13. MIACALCIN [Concomitant]

REACTIONS (1)
  - PLATELET COUNT INCREASED [None]
